FAERS Safety Report 17509559 (Version 4)
Quarter: 2022Q4

REPORT INFORMATION
  Report Type: Report from Study
  Country: JP (occurrence: JP)
  Receive Date: 20200306
  Receipt Date: 20221124
  Transmission Date: 20230113
  Serious: Yes (Death, Hospitalization)
  Sender: FDA-Public Use
  Company Number: JP-JNJFOC-20200303194

PATIENT
  Age: 46 Year
  Sex: Male

DRUGS (56)
  1. SYMTUZA [Suspect]
     Active Substance: COBICISTAT\DARUNAVIR\EMTRICITABINE\TENOFOVIR ALAFENAMIDE
     Indication: HIV infection
     Dosage: DOSE UNKNOWN
     Route: 048
     Dates: start: 20191023
  2. SYMTUZA [Suspect]
     Active Substance: COBICISTAT\DARUNAVIR\EMTRICITABINE\TENOFOVIR ALAFENAMIDE
     Indication: HIV infection
     Dosage: DOSE UNKNOWN, WEEKDAYAFTER MEALS
     Route: 048
     Dates: end: 2020
  3. SYMTUZA [Suspect]
     Active Substance: COBICISTAT\DARUNAVIR\EMTRICITABINE\TENOFOVIR ALAFENAMIDE
     Indication: HIV infection
     Dosage: DOSE UNKNOWN
     Route: 048
     Dates: start: 2020, end: 20221004
  4. MONTELUKAST [Concomitant]
     Active Substance: MONTELUKAST SODIUM
     Route: 048
     Dates: start: 20170413, end: 20220715
  5. ASVERIN (TIPEPIDINE HIBENZATE) [Concomitant]
     Active Substance: TIPEPIDINE HIBENZATE
     Indication: Pertussis
     Route: 048
     Dates: start: 20170403
  6. ASVERIN (TIPEPIDINE HIBENZATE) [Concomitant]
     Active Substance: TIPEPIDINE HIBENZATE
     Route: 048
     Dates: start: 20200120, end: 20220715
  7. PROCATEROL HYDROCHLORIDE [Concomitant]
     Active Substance: PROCATEROL HYDROCHLORIDE
     Indication: Pertussis
     Dosage: 100INHALATION
     Route: 055
     Dates: start: 20170413
  8. PROCATEROL HYDROCHLORIDE [Concomitant]
     Active Substance: PROCATEROL HYDROCHLORIDE
     Dosage: DOSE UNKNOWN
     Route: 055
     Dates: start: 20200120, end: 20220715
  9. EPINASTINE HYDROCHLORIDE [Concomitant]
     Active Substance: EPINASTINE HYDROCHLORIDE
     Route: 048
     Dates: start: 20170428, end: 20210527
  10. SYMBICORT [Concomitant]
     Active Substance: BUDESONIDE\FORMOTEROL FUMARATE DIHYDRATE
     Indication: Pertussis
     Dosage: DOSE UNKNOWN
     Route: 055
     Dates: start: 20170720
  11. SYMBICORT [Concomitant]
     Active Substance: BUDESONIDE\FORMOTEROL FUMARATE DIHYDRATE
     Dosage: DOSE UNKNOWN
     Route: 055
     Dates: start: 20200128, end: 20200512
  12. QVAR [Concomitant]
     Active Substance: BECLOMETHASONE DIPROPIONATE
     Dosage: DOSE UNKNOWN
     Route: 055
     Dates: start: 20200513, end: 20220715
  13. VIBRAMYCIN [DOXYCYCLINE HYDROCHLORIDE] [Concomitant]
     Indication: Urge incontinence
     Dosage: DOSE UNKNOWN
     Route: 065
     Dates: start: 20210616, end: 20210717
  14. SENNOSIDES A AND B [Concomitant]
     Active Substance: SENNOSIDES A AND B
     Indication: Prophylaxis
     Dosage: DOSE UNKNOWN
     Route: 048
     Dates: start: 20200114, end: 20200211
  15. MAGNESIUM OXIDE [Concomitant]
     Active Substance: MAGNESIUM OXIDE
     Indication: Prophylaxis
     Route: 048
     Dates: start: 20200212, end: 20200224
  16. GLYCERIN [Concomitant]
     Active Substance: GLYCERIN
     Indication: Prophylaxis
     Route: 054
     Dates: start: 20200118, end: 20200131
  17. GLYCERIN [Concomitant]
     Active Substance: GLYCERIN
     Indication: Prophylaxis
  18. MAGNESIUM OXIDE [Concomitant]
     Active Substance: MAGNESIUM OXIDE
     Indication: Prophylaxis
     Route: 048
     Dates: start: 20210527, end: 2021
  19. LOPERAMIDE HYDROCHLORIDE [Concomitant]
     Active Substance: LOPERAMIDE HYDROCHLORIDE
     Indication: Prophylaxis
     Dosage: DOSE UNKNOWN
     Route: 048
     Dates: start: 20210527, end: 2021
  20. ACETAMINOPHEN [Concomitant]
     Active Substance: ACETAMINOPHEN
     Indication: Prophylaxis
     Route: 048
     Dates: start: 20200114, end: 20200117
  21. ACETAMINOPHEN\TRAMADOL HYDROCHLORIDE [Concomitant]
     Active Substance: ACETAMINOPHEN\TRAMADOL HYDROCHLORIDE
     Indication: Prophylaxis
     Dosage: DOSE UNKNOWN
     Route: 048
     Dates: start: 20200117, end: 20201019
  22. ACETAMINOPHEN [Concomitant]
     Active Substance: ACETAMINOPHEN
     Indication: Prophylaxis
     Route: 042
     Dates: start: 20200117, end: 20200117
  23. ALENDRONATE [Concomitant]
     Active Substance: ALENDRONATE SODIUM
     Indication: Femoral neck fracture
     Route: 048
     Dates: start: 20200217, end: 20200225
  24. ALFACALCIDOL [Concomitant]
     Active Substance: ALFACALCIDOL
     Route: 048
     Dates: start: 20200218, end: 20200225
  25. CALCIUM CHLORIDE\POTASSIUM CHLORIDE\SODIUM ACETATE\SODIUM CHLORIDE [Concomitant]
     Active Substance: CALCIUM CHLORIDE\POTASSIUM CHLORIDE\SODIUM ACETATE\SODIUM CHLORIDE
     Indication: Fluid replacement
     Route: 065
     Dates: start: 20200116, end: 20200117
  26. HEPARIN SODIUM [Concomitant]
     Active Substance: HEPARIN SODIUM
     Indication: Thrombosis
     Route: 065
     Dates: start: 20200116, end: 20200117
  27. CEFMETAZOLE [Concomitant]
     Active Substance: CEFMETAZOLE
     Indication: Prophylaxis
     Dosage: DOSE UNKNOWN
     Route: 042
     Dates: start: 20200116, end: 20200117
  28. PENTAZOCINE [Concomitant]
     Active Substance: PENTAZOCINE
     Indication: Prophylaxis
     Route: 065
     Dates: start: 20200116, end: 20200116
  29. ATARAX-P [HYDROXYZINE HYDROCHLORIDE] [Concomitant]
     Indication: Prophylaxis
     Route: 065
     Dates: start: 20200116, end: 20200117
  30. HALOPERIDOL [Concomitant]
     Active Substance: HALOPERIDOL
     Indication: Prophylaxis
     Route: 065
     Dates: start: 20200117, end: 20200117
  31. REMIFENTANIL [Concomitant]
     Active Substance: REMIFENTANIL
     Indication: General anaesthesia
     Route: 042
     Dates: start: 20200116, end: 20200116
  32. FENTANYL [Concomitant]
     Active Substance: FENTANYL
     Indication: General anaesthesia
     Route: 065
     Dates: start: 20200116, end: 20200116
  33. URAPIDIL [Concomitant]
     Active Substance: URAPIDIL
     Indication: Bladder catheter removal
     Route: 048
     Dates: start: 20200120, end: 20200128
  34. TRIAMCINOLONE [Concomitant]
     Active Substance: TRIAMCINOLONE
     Indication: Stomatitis
     Route: 049
     Dates: start: 20200120, end: 20210121
  35. DEXAMETHASONE [Concomitant]
     Active Substance: DEXAMETHASONE
     Indication: Stomatitis
     Dosage: DOSE UNKNOWN
     Route: 061
     Dates: start: 20200121, end: 202001
  36. FORTEO [Concomitant]
     Active Substance: TERIPARATIDE
     Indication: Bone formation decreased
     Route: 058
     Dates: start: 20200123, end: 20200217
  37. FORTEO [Concomitant]
     Active Substance: TERIPARATIDE
     Indication: Bone formation decreased
     Dosage: DOSE UNKNOWN
     Route: 058
     Dates: start: 20200513, end: 20200513
  38. KETOPROFEN [Concomitant]
     Active Substance: KETOPROFEN
     Indication: Prophylaxis
     Dosage: DOSE UNKNOWN
     Route: 062
     Dates: start: 20200124, end: 20200209
  39. AUGMENTIN [Concomitant]
     Active Substance: AMOXICILLIN\CLAVULANATE POTASSIUM
     Indication: Pertussis
     Dosage: DOSE UNKNOWN
     Route: 048
     Dates: start: 20200131, end: 20200204
  40. AMOXICILLIN TRIHYDRATE [Concomitant]
     Active Substance: AMOXICILLIN
     Indication: Pertussis
     Route: 048
     Dates: start: 20200131, end: 20220204
  41. AZITHROMYCIN DIHYDRATE [Concomitant]
     Active Substance: AZITHROMYCIN DIHYDRATE
     Indication: Pertussis
     Route: 048
     Dates: start: 20200212, end: 20200214
  42. TRAZODONE HYDROCHLORIDE [Concomitant]
     Active Substance: TRAZODONE HYDROCHLORIDE
     Route: 048
     Dates: start: 20200114, end: 20200118
  43. QUETIAPINE [Concomitant]
     Active Substance: QUETIAPINE
     Route: 048
     Dates: start: 20200114, end: 20200118
  44. RISPERIDONE [Concomitant]
     Active Substance: RISPERIDONE
     Route: 048
     Dates: start: 20200114, end: 20200118
  45. RISPERIDONE [Concomitant]
     Active Substance: RISPERIDONE
     Route: 048
     Dates: start: 20220622, end: 20220701
  46. FLUNITRAZEPAM [Concomitant]
     Active Substance: FLUNITRAZEPAM
     Route: 048
     Dates: start: 20200114, end: 20200204
  47. CHLORPROMAZINE HYDROCHLORIDE [Concomitant]
     Active Substance: CHLORPROMAZINE HYDROCHLORIDE
     Route: 048
     Dates: start: 20200116, end: 20200203
  48. LEVOMEPROMAZINE [Concomitant]
     Active Substance: LEVOMEPROMAZINE
     Route: 048
     Dates: start: 20200116, end: 20200121
  49. ZOLPIDEM TARTRATE [Concomitant]
     Active Substance: ZOLPIDEM TARTRATE
     Indication: Prophylaxis
     Route: 048
     Dates: start: 20200203, end: 20200207
  50. HUMAN RED BLOOD CELL [Concomitant]
     Active Substance: HUMAN RED BLOOD CELL
     Indication: Transfusion
     Dosage: DOSE UNKNOWN
     Route: 042
     Dates: start: 20200116, end: 20200117
  51. SYMBICORT [Concomitant]
     Active Substance: BUDESONIDE\FORMOTEROL FUMARATE DIHYDRATE
     Dosage: UNKNOWN
     Route: 065
  52. TRAMADOL [Concomitant]
     Active Substance: TRAMADOL
     Indication: Prophylaxis
     Route: 048
     Dates: start: 20220622, end: 20220701
  53. LOXOPROFEN [Concomitant]
     Active Substance: LOXOPROFEN
     Indication: Prophylaxis
     Route: 048
     Dates: start: 20220622, end: 20220701
  54. DAIMEDIN [BENFOTIAMINE;CYANOCOBALAMIN;PYRIDOXINE HYDROCHLORIDE] [Concomitant]
     Indication: Prophylaxis
     Dosage: DOSE UNKNOWN
     Route: 048
     Dates: start: 20220622, end: 20220701
  55. ALBUTEROL SULFATE [Concomitant]
     Active Substance: ALBUTEROL SULFATE
     Dosage: DOSE UNKNOWN
     Route: 055
     Dates: start: 20220623, end: 20220624
  56. ACETAMINOPHEN [Concomitant]
     Active Substance: ACETAMINOPHEN
     Indication: Prophylaxis
     Dosage: DOSE UNKNOWN
     Route: 048
     Dates: start: 20220622, end: 20220701

REACTIONS (7)
  - Death [Fatal]
  - Femoral neck fracture [Recovered/Resolved]
  - Upper limb fracture [Recovering/Resolving]
  - Pertussis [Recovering/Resolving]
  - Stomatitis [Recovering/Resolving]
  - Urge incontinence [Recovering/Resolving]
  - Treatment noncompliance [Recovering/Resolving]

NARRATIVE: CASE EVENT DATE: 20200101
